FAERS Safety Report 9772375 (Version 1)
Quarter: 2013Q4

REPORT INFORMATION
  Report Type: Spontaneous
  Country: US (occurrence: None)
  Receive Date: 20131217
  Receipt Date: 20131217
  Transmission Date: 20140711
  Serious: Yes (Death, Hospitalization)
  Sender: FDA-Public Use
  Company Number: 2013AP010448

PATIENT
  Age: 52 Year
  Sex: Male
  Weight: 106 kg

DRUGS (8)
  1. FERRIPROX [Suspect]
     Indication: IRON METABOLISM DISORDER
     Route: 048
     Dates: start: 20131201, end: 20131205
  2. DESFERAL [Concomitant]
  3. ALBUMIN [Concomitant]
  4. PROTONIX [Concomitant]
  5. INSULIN [Concomitant]
  6. LACTATE RINGER [Concomitant]
  7. NORMAL SALINE [Concomitant]
  8. INTRAVENOUS FLUIDS [Concomitant]

REACTIONS (1)
  - Death [None]
